FAERS Safety Report 16481457 (Version 2)
Quarter: 2019Q3

REPORT INFORMATION
  Report Type: Spontaneous
  Country: HR (occurrence: HR)
  Receive Date: 20190627
  Receipt Date: 20190726
  Transmission Date: 20191004
  Serious: Yes (Death)
  Sender: FDA-Public Use
  Company Number: HR-ABBVIE-19K-216-2834204-00

PATIENT
  Age: 65 Year
  Sex: Male

DRUGS (3)
  1. PRAMIPEXOLE. [Concomitant]
     Active Substance: PRAMIPEXOLE
     Indication: PARKINSON^S DISEASE
     Dosage: 2 TABLETS OF 0.7 MG AT 10 P.M.
     Route: 048
     Dates: start: 20190325
  2. DUODOPA [Suspect]
     Active Substance: CARBIDOPA\LEVODOPA
     Indication: PARKINSON^S DISEASE
     Dosage: 20MG/ML 5MG/ML, CONTINUOUS DOSE 2,5 ML/H, MORNING DOSE 4 ML , ADDITIONAL DOSE 1.5 ML
     Route: 050
     Dates: start: 201505, end: 20190616
  3. RASAGILINE. [Concomitant]
     Active Substance: RASAGILINE
     Indication: PARKINSON^S DISEASE
     Dosage: 1 MG AT 10 P.M.
     Route: 048
     Dates: start: 20190325

REACTIONS (1)
  - Cardio-respiratory arrest [Fatal]

NARRATIVE: CASE EVENT DATE: 20190616
